FAERS Safety Report 5692131-3 (Version None)
Quarter: 2008Q2

REPORT INFORMATION
  Report Type: 
  Country: None (occurrence: None)
  Receive Date: 20080402
  Receipt Date: 20080325
  Transmission Date: 20081010
  Serious: Yes (Other)
  Sender: FDA-Public Use
  Company Number: BR-PFIZER INC-2008026109

PATIENT
  Age: 36 Year
  Sex: Female

DRUGS (12)
  1. DOXORUBICIN HCL [Suspect]
  2. CISPLATIN [Suspect]
  3. ETOPOSIDE [Suspect]
  4. CYTARABINE [Suspect]
  5. BLEOMYCIN SULFATE [Suspect]
  6. VINBLASTINE SULFATE [Suspect]
  7. DACARBAZINE [Suspect]
  8. DEXAMETHASONE TAB [Suspect]
  9. CARMUSTINE [Suspect]
  10. MELPHALAN [Suspect]
  11. MITOXANTRONE [Suspect]
  12. FLUDARABINE [Suspect]

REACTIONS (3)
  - AMENORRHOEA [None]
  - HODGKIN'S DISEASE [None]
  - HODGKIN'S DISEASE RECURRENT [None]
